FAERS Safety Report 11583942 (Version 1)
Quarter: 2015Q4

REPORT INFORMATION
  Report Type: Spontaneous
  Country: US (occurrence: US)
  Receive Date: 20151001
  Receipt Date: 20151001
  Transmission Date: 20160304
  Serious: No
  Sender: FDA-Public Use
  Company Number: US-ROCHE-669839

PATIENT
  Age: 39 Year
  Sex: Female

DRUGS (2)
  1. PEGASYS [Suspect]
     Active Substance: PEGINTERFERON ALFA-2A
     Indication: HEPATITIS C
     Dosage: FORM: PRE-FILLED SYRINGE (PFS); INDICATION: HEPATITIS C WITH HIV COINFECTION, GENOTYPE 3
     Route: 065
  2. COPEGUS [Suspect]
     Active Substance: RIBAVIRIN
     Indication: HEPATITIS C
     Dosage: IN DIVIDED DOSES; INDICATION: HEPATITIS C WITH HIV COINFECTION, GENOTYPE 3
     Route: 065

REACTIONS (19)
  - Decreased appetite [Unknown]
  - Chills [Not Recovered/Not Resolved]
  - Crying [Unknown]
  - Fatigue [Not Recovered/Not Resolved]
  - Laziness [Unknown]
  - Hallucination [Unknown]
  - Diarrhoea [Recovered/Resolved]
  - Vision blurred [Unknown]
  - Feeling abnormal [Unknown]
  - Blood potassium decreased [Unknown]
  - Pyrexia [Unknown]
  - Chest pain [Recovering/Resolving]
  - Decreased appetite [Unknown]
  - Asthenia [Unknown]
  - Dyspnoea [Unknown]
  - Pruritus generalised [Not Recovered/Not Resolved]
  - Nausea [Unknown]
  - Headache [Unknown]
  - Dehydration [Unknown]

NARRATIVE: CASE EVENT DATE: 20091025
